FAERS Safety Report 9635460 (Version 3)
Quarter: 2013Q4

REPORT INFORMATION
  Report Type: Report from Study
  Country: JP (occurrence: JP)
  Receive Date: 20131021
  Receipt Date: 20131119
  Transmission Date: 20140711
  Serious: No
  Sender: FDA-Public Use
  Company Number: JP-EISAI INC-E2080-00661-SOL-JP

PATIENT
  Age: 20 Year
  Sex: Male
  Weight: 64.8 kg

DRUGS (10)
  1. INOVELON [Suspect]
     Indication: LENNOX-GASTAUT SYNDROME
     Route: 048
     Dates: start: 20130904, end: 20131001
  2. INOVELON [Suspect]
     Route: 048
     Dates: start: 20131002, end: 20131104
  3. INOVELON [Suspect]
     Route: 048
     Dates: start: 20131105
  4. WARFARIN [Suspect]
     Indication: DEEP VEIN THROMBOSIS
     Route: 048
     Dates: start: 20130807, end: 20131001
  5. WARFARIN [Suspect]
     Route: 048
     Dates: start: 20131002, end: 20131021
  6. WARFARIN [Suspect]
     Route: 048
     Dates: start: 20131022
  7. ALEVIATIN [Concomitant]
     Dosage: 7400 MG X2
     Route: 048
  8. L-CARTIN [Concomitant]
     Dosage: 1200 MG X2
     Route: 048
  9. LAMICTAL [Concomitant]
     Route: 048
  10. DEPAKENE-R [Concomitant]
     Dosage: 1400 MG X2
     Route: 048

REACTIONS (1)
  - International normalised ratio decreased [Recovering/Resolving]
